FAERS Safety Report 6093698-6 (Version None)
Quarter: 2009Q1

REPORT INFORMATION
  Report Type: 
  Country: None (occurrence: None)
  Receive Date: 20090223
  Receipt Date: 20090223
  Transmission Date: 20090719
  Serious: No
  Sender: FDA-Public Use
  Company Number: None

PATIENT
  Age: 49 Year
  Sex: Female
  Weight: 95.2554 kg

DRUGS (1)
  1. DEXPAK TAPERPACK 13 ECR PHARMACEUTICALS [Suspect]
     Indication: BACK PAIN
     Dosage: 13 DAYS, 6 START, END 2  DAILY PO
     Route: 048
     Dates: start: 20090209, end: 20090219

REACTIONS (17)
  - ABASIA [None]
  - ACTIVITIES OF DAILY LIVING IMPAIRED [None]
  - AGEUSIA [None]
  - DRUG EFFECT DECREASED [None]
  - ERYTHEMA [None]
  - FEELING ABNORMAL [None]
  - HEADACHE [None]
  - INCONTINENCE [None]
  - JOINT SWELLING [None]
  - OCULAR DISCOMFORT [None]
  - PAIN OF SKIN [None]
  - POLLAKIURIA [None]
  - POOR QUALITY SLEEP [None]
  - RASH [None]
  - SENSATION OF PRESSURE [None]
  - SKIN CHAPPED [None]
  - VISION BLURRED [None]
